FAERS Safety Report 6402692-4 (Version None)
Quarter: 2009Q4

REPORT INFORMATION
  Report Type: 
  Country: None (occurrence: None)
  Receive Date: 20091009
  Receipt Date: 20091001
  Transmission Date: 20100525
  Serious: Yes (Hospitalization)
  Sender: FDA-Public Use
  Company Number: ADR36722009

PATIENT
  Age: 77 Year
  Sex: Female

DRUGS (9)
  1. SIMVASTATIN [Suspect]
     Dosage: 40 MG, ORAL
     Route: 048
  2. CIPROFLOXACIN [Suspect]
     Indication: URINARY TRACT INFECTION
  3. ASPIRIN [Concomitant]
  4. CIMETIDINE [Concomitant]
  5. FUROSEMIDE [Concomitant]
  6. ISOSORBIDE MONONITRATE [Concomitant]
  7. LEVOTHYROXINE SODIUM [Concomitant]
  8. NICORANDIL [Concomitant]
  9. PINDOLOL [Concomitant]

REACTIONS (2)
  - DRUG INTERACTION [None]
  - RHABDOMYOLYSIS [None]
